FAERS Safety Report 9795906 (Version 2)
Quarter: 2014Q1

REPORT INFORMATION
  Report Type: Report from Study
  Country: JP (occurrence: JP)
  Receive Date: 20140103
  Receipt Date: 20140116
  Transmission Date: 20141002
  Serious: Yes (Hospitalization)
  Sender: FDA-Public Use
  Company Number: JP-ABBVIE-14P-087-1185494-00

PATIENT
  Age: 50 Year
  Sex: Male

DRUGS (15)
  1. NORVIR [Suspect]
     Indication: HIV INFECTION
     Route: 048
     Dates: start: 20090123, end: 20110705
  2. NORVIR [Suspect]
     Route: 048
     Dates: start: 20111121
  3. FOSAMPRENAVIR [Suspect]
     Indication: HIV INFECTION
     Route: 048
     Dates: start: 20110113, end: 20110705
  4. FOSAMPRENAVIR [Suspect]
     Route: 048
     Dates: start: 20111121
  5. ATAZANAVIR [Suspect]
     Indication: HIV INFECTION
     Route: 048
     Dates: start: 20090123, end: 20110112
  6. TRUVADA [Suspect]
     Indication: HIV INFECTION
     Route: 048
     Dates: start: 20090123
  7. RALTEGRAVIR [Suspect]
     Indication: HIV INFECTION
     Route: 048
     Dates: start: 20110706, end: 20111120
  8. BROTIZOLAM [Concomitant]
     Indication: PRODUCT USED FOR UNKNOWN INDICATION
     Dates: start: 20100916, end: 20101117
  9. ZOLPIDEM [Concomitant]
     Indication: PRODUCT USED FOR UNKNOWN INDICATION
     Dates: start: 20101118, end: 20110809
  10. ZOLPIDEM [Concomitant]
     Dates: start: 20110810
  11. TRETINOIN [Concomitant]
     Indication: PRODUCT USED FOR UNKNOWN INDICATION
     Dates: start: 20120620, end: 20120703
  12. TRETINOIN [Concomitant]
     Dates: start: 20121003, end: 20121016
  13. TRETINOIN [Concomitant]
     Dates: start: 20130116, end: 20130129
  14. METOCLOPRAMIDE HCL [Concomitant]
     Indication: PRODUCT USED FOR UNKNOWN INDICATION
     Dates: start: 20120516, end: 20120614
  15. REBAMIPIDE [Concomitant]
     Indication: PRODUCT USED FOR UNKNOWN INDICATION
     Dates: start: 20130227, end: 20130312

REACTIONS (2)
  - Bone marrow failure [Unknown]
  - Acute promyelocytic leukaemia [Unknown]
